FAERS Safety Report 14603835 (Version 1)
Quarter: 2018Q1

REPORT INFORMATION
  Report Type: Spontaneous
  Country: US (occurrence: US)
  Receive Date: 20180306
  Receipt Date: 20180306
  Transmission Date: 20180509
  Serious: No
  Sender: FDA-Public Use
  Company Number: US-AEGERION PHARMACEUTICAL, INC-AEGR003338

PATIENT
  Age: 17 Year
  Sex: Female
  Weight: 31.75 kg

DRUGS (1)
  1. MYALEPT [Suspect]
     Active Substance: METRELEPTIN
     Indication: CONGENITAL GENERALISED LIPODYSTROPHY
     Dosage: 2.5 MG, QD
     Route: 058
     Dates: start: 20160530

REACTIONS (2)
  - Oral mucosal blistering [Unknown]
  - Food allergy [Unknown]

NARRATIVE: CASE EVENT DATE: 201708
